FAERS Safety Report 25282732 (Version 1)
Quarter: 2025Q2

REPORT INFORMATION
  Report Type: Spontaneous
  Country: US (occurrence: None)
  Receive Date: 20250507
  Receipt Date: 20250507
  Transmission Date: 20250717
  Serious: Yes (Death)
  Sender: FDA-CTU
  Company Number: None

PATIENT
  Age: 73 Year
  Sex: Female

DRUGS (11)
  1. REGRANEX [Suspect]
     Active Substance: BECAPLERMIN
     Indication: Wound
     Dosage: FREQUENCY : DAILY;?
     Route: 061
     Dates: start: 20241212
  2. CARVEDILOL [Concomitant]
     Active Substance: CARVEDILOL
  3. FARXIGA [Concomitant]
     Active Substance: DAPAGLIFLOZIN PROPANEDIOL
  4. FOLIC ACID [Concomitant]
     Active Substance: FOLIC ACID
  5. FUROSEMIDE [Concomitant]
     Active Substance: FUROSEMIDE
  6. HUMALOG [Concomitant]
     Active Substance: INSULIN LISPRO
  7. ISOSORBIDE DINITRATE [Concomitant]
     Active Substance: ISOSORBIDE DINITRATE
  8. LEVOTHYROXINE [Concomitant]
     Active Substance: LEVOTHYROXINE
  9. MYCOPHENOLIC ACID [Suspect]
     Active Substance: MYCOPHENOLIC ACID
  10. NITROGLYCERIN [Concomitant]
     Active Substance: NITROGLYCERIN
  11. PREDNISONE [Concomitant]
     Active Substance: PREDNISONE

REACTIONS (1)
  - Death [None]
